FAERS Safety Report 5638757-4 (Version None)
Quarter: 2008Q1

REPORT INFORMATION
  Report Type: 
  Country: None (occurrence: None)
  Receive Date: 20080226
  Receipt Date: 20080214
  Transmission Date: 20080703
  Serious: Yes (Other)
  Sender: FDA-Public Use
  Company Number: US-ASTRAZENECA-2007UW02067

PATIENT
  Age: 41 Year
  Sex: Female
  Weight: 135 kg

DRUGS (7)
  1. SEROQUEL [Suspect]
     Indication: BIPOLAR DISORDER
     Dosage: 100 MG TO 600 MG
     Route: 048
     Dates: start: 20010501
  2. SEROQUEL [Suspect]
     Indication: POST-TRAUMATIC STRESS DISORDER
     Dosage: 100 MG TO 600 MG
     Route: 048
     Dates: start: 20010501
  3. ABILIFY [Concomitant]
     Dates: start: 20050501
  4. GEODON [Concomitant]
     Dates: start: 20050501
  5. HALDOL [Concomitant]
  6. RISPERDAL [Concomitant]
     Dates: start: 20060101
  7. LAMICTAL [Concomitant]
     Dates: start: 20051001

REACTIONS (4)
  - GALLBLADDER OPERATION [None]
  - PSORIASIS [None]
  - TYPE 2 DIABETES MELLITUS [None]
  - WEIGHT INCREASED [None]
